FAERS Safety Report 4705914-0 (Version None)
Quarter: 2005Q2

REPORT INFORMATION
  Report Type: 
  Country: None (occurrence: None)
  Receive Date: 20050629
  Receipt Date: 20050331
  Transmission Date: 20051028
  Serious: Yes (Other)
  Sender: FDA-Public Use
  Company Number: PAR_0091_2005

PATIENT
  Age: 43 Year
  Sex: Male

DRUGS (3)
  1. ISOPTIN [Suspect]
     Indication: HYPERTROPHIC OBSTRUCTIVE CARDIOMYOPATHY
     Dosage: 240 MG QDAY PO
     Route: 048
     Dates: start: 19980429
  2. ISOPTIN [Suspect]
     Indication: SUBVALVULAR AORTIC STENOSIS
     Dosage: 240 MG QDAY PO
     Route: 048
     Dates: start: 19980429
  3. ISOSORBIDE MONONITRATE [Concomitant]

REACTIONS (2)
  - BREAST CYST [None]
  - GYNAECOMASTIA [None]
